FAERS Safety Report 6371666-4 (Version None)
Quarter: 2009Q3

REPORT INFORMATION
  Report Type: 
  Country: None (occurrence: None)
  Receive Date: 20090923
  Receipt Date: 20080509
  Transmission Date: 20100115
  Serious: No
  Sender: FDA-Public Use
  Company Number: US-ASTRAZENECA-2008UW02251

PATIENT
  Age: 47 Year
  Sex: Female
  Weight: 77.1 kg

DRUGS (28)
  1. SEROQUEL [Suspect]
     Indication: DEPRESSION
     Dosage: 100-300 MG
     Route: 048
     Dates: start: 20050104
  2. SEROQUEL [Suspect]
     Indication: SLEEP DISORDER
     Dosage: 100-300 MG
     Route: 048
     Dates: start: 20050104
  3. SEROQUEL [Suspect]
     Dosage: VARIOUS INCLUDING BUT NOT LIMITED TO 300 MG
     Route: 048
     Dates: start: 20051201, end: 20060601
  4. SEROQUEL [Suspect]
     Dosage: VARIOUS INCLUDING BUT NOT LIMITED TO 300 MG
     Route: 048
     Dates: start: 20051201, end: 20060601
  5. ABILIFY [Concomitant]
     Dates: start: 20040101
  6. WELLBUTRIN [Concomitant]
     Dates: start: 20060101
  7. ALBUTEROL [Concomitant]
  8. AMBIEN [Concomitant]
  9. ATIVAN [Concomitant]
  10. KLONOPIN [Concomitant]
  11. EFFEXOR [Concomitant]
  12. LASIX [Concomitant]
  13. LEXAPRO [Concomitant]
  14. LIPITOR [Concomitant]
  15. LISINOPRIL [Concomitant]
  16. LORAZEPAM [Concomitant]
  17. NAPROSYN [Concomitant]
  18. NEXIUM [Concomitant]
  19. PAXIL [Concomitant]
  20. PROZAC [Concomitant]
  21. PROTONIX [Concomitant]
  22. ROCEPHIN [Concomitant]
  23. SERZONE [Concomitant]
  24. SYNTHROID [Concomitant]
  25. VALIUM [Concomitant]
  26. VISTARIL [Concomitant]
  27. XANAX [Concomitant]
  28. ZITHROMAX [Concomitant]

REACTIONS (6)
  - BLINDNESS [None]
  - DIABETES MELLITUS [None]
  - GAIT DISTURBANCE [None]
  - HYPERTENSION [None]
  - ILL-DEFINED DISORDER [None]
  - OVERDOSE [None]
